FAERS Safety Report 7725653-1 (Version None)
Quarter: 2011Q3

REPORT INFORMATION
  Report Type: 
  Country: None (occurrence: None)
  Receive Date: 20110902
  Receipt Date: 20110830
  Transmission Date: 20111222
  Serious: Yes (Death)
  Sender: FDA-Public Use
  Company Number: US-ASTELLAS-2011US005439

PATIENT
  Age: 67 Year
  Sex: Male

DRUGS (2)
  1. SODIUM CHLORIDE [Concomitant]
     Indication: PROPHYLAXIS AGAINST DEHYDRATION
     Dosage: UNK
     Route: 065
     Dates: start: 20110823
  2. VAPRISOL [Suspect]
     Indication: BLOOD SODIUM DECREASED
     Dosage: UNK
     Route: 065
     Dates: start: 20110823, end: 20110823

REACTIONS (2)
  - LUNG NEOPLASM MALIGNANT [None]
  - THERAPEUTIC RESPONSE INCREASED [None]
